FAERS Safety Report 13727072 (Version 4)
Quarter: 2017Q3

REPORT INFORMATION
  Report Type: Report from Study
  Country: US (occurrence: US)
  Receive Date: 20170706
  Receipt Date: 20170810
  Transmission Date: 20171127
  Serious: Yes (Other)
  Sender: FDA-Public Use
  Company Number: US-JAZZ-2016-US-024507

PATIENT
  Sex: Female
  Weight: 51.25 kg

DRUGS (32)
  1. XYREM [Suspect]
     Active Substance: SODIUM OXYBATE
     Dosage: DOSE ADJUSTMENT
     Route: 048
     Dates: start: 2016, end: 2016
  2. XYREM [Suspect]
     Active Substance: SODIUM OXYBATE
     Dosage: 4.5 G, BID
     Route: 048
     Dates: start: 2016, end: 201702
  3. AMITRIPTYLINE HCL [Concomitant]
     Active Substance: AMITRIPTYLINE
  4. COQ [Concomitant]
  5. SELENIUM [Concomitant]
     Active Substance: SELENIUM
  6. ADDERALL [Concomitant]
     Active Substance: AMPHETAMINE ASPARTATE\AMPHETAMINE SULFATE\DEXTROAMPHETAMINE SACCHARATE\DEXTROAMPHETAMINE SULFATE
     Indication: NARCOLEPSY
  7. METHADONE HCL [Concomitant]
     Active Substance: METHADONE HYDROCHLORIDE
  8. ZOFRAN [Concomitant]
     Active Substance: ONDANSETRON HYDROCHLORIDE
  9. MELATONIN [Concomitant]
     Active Substance: MELATONIN
  10. MSM [Concomitant]
     Active Substance: DIMETHYL SULFONE
  11. POTASSIUM [Concomitant]
     Active Substance: POTASSIUM
     Indication: PRODUCT USED FOR UNKNOWN INDICATION
  12. PREDNISONE. [Concomitant]
     Active Substance: PREDNISONE
     Indication: ARTHRALGIA
  13. ALPHA LIPOIC ACID [Concomitant]
     Active Substance: .ALPHA.-LIPOIC ACID
  14. ECHINACEA + GOLDENSEAL [Concomitant]
  15. CLONAZEPAM. [Concomitant]
     Active Substance: CLONAZEPAM
  16. GAVISCON                           /00237601/ [Concomitant]
     Active Substance: ALUMINUM HYDROXIDE\MAGNESIUM CARBONATE
  17. METOPROLOL TARTRATE. [Concomitant]
     Active Substance: METOPROLOL TARTRATE
  18. XYREM [Suspect]
     Active Substance: SODIUM OXYBATE
     Dosage: 2.25 G, BID
     Route: 048
     Dates: start: 2017
  19. NEURONTIN [Concomitant]
     Active Substance: GABAPENTIN
  20. BENADRYL ALLERGY [Concomitant]
     Active Substance: DIPHENHYDRAMINE HYDROCHLORIDE
  21. KLONOPIN [Concomitant]
     Active Substance: CLONAZEPAM
     Indication: PANIC ATTACK
  22. REGLAN [Concomitant]
     Active Substance: METOCLOPRAMIDE HYDROCHLORIDE
     Indication: NAUSEA
  23. ZINC GLUCONATE [Concomitant]
     Active Substance: ZINC GLUCONATE
  24. ESTROGEN [Concomitant]
     Active Substance: ESTROGENS
  25. METHADONE [Concomitant]
     Active Substance: METHADONE HYDROCHLORIDE
     Indication: ARTHRALGIA
  26. LEVOTHYROXINE. [Concomitant]
     Active Substance: LEVOTHYROXINE
     Indication: HYPOTHYROIDISM
  27. TYLENOL EXTRA STRENGTH [Concomitant]
     Active Substance: ACETAMINOPHEN
  28. VITAMIN C [Concomitant]
     Active Substance: ASCORBIC ACID
  29. XYREM [Suspect]
     Active Substance: SODIUM OXYBATE
     Indication: NARCOLEPSY
     Dosage: 2.25 G, BID
     Route: 048
     Dates: start: 201612, end: 2016
  30. ESTRADIOL. [Concomitant]
     Active Substance: ESTRADIOL
     Indication: HORMONE REPLACEMENT THERAPY
  31. REGLAN [Concomitant]
     Active Substance: METOCLOPRAMIDE HYDROCHLORIDE
     Indication: NAUSEA
  32. BIOTIN [Concomitant]
     Active Substance: BIOTIN

REACTIONS (18)
  - Loss of consciousness [Recovered/Resolved]
  - Condition aggravated [Recovered/Resolved]
  - Heart rate irregular [Unknown]
  - Dyspnoea [Unknown]
  - Therapeutic response unexpected [Unknown]
  - Insomnia [Recovered/Resolved]
  - Feeling abnormal [Recovered/Resolved]
  - Swelling [Unknown]
  - Blood pressure increased [Recovered/Resolved]
  - Weight decreased [Recovering/Resolving]
  - Heart rate increased [Recovered/Resolved]
  - Post viral fatigue syndrome [Unknown]
  - Pain [Recovered/Resolved]
  - Pre-existing condition improved [Unknown]
  - Hypoaesthesia [Not Recovered/Not Resolved]
  - Tremor [Recovered/Resolved]
  - Dizziness [Unknown]
  - Enuresis [Recovered/Resolved]

NARRATIVE: CASE EVENT DATE: 2016
